FAERS Safety Report 23835211 (Version 2)
Quarter: 2024Q4

REPORT INFORMATION
  Report Type: Report from Study
  Country: DE (occurrence: DE)
  Receive Date: 20240509
  Receipt Date: 20241127
  Transmission Date: 20250115
  Serious: Yes (Hospitalization, Other)
  Sender: SANDOZ
  Company Number: None

PATIENT
  Sex: Male

DRUGS (10)
  1. METHOTREXATE [Suspect]
     Active Substance: METHOTREXATE
     Dosage: 10 MG, UNK
     Route: 065
     Dates: start: 20180112
  2. METHOTREXATE [Suspect]
     Active Substance: METHOTREXATE
     Indication: Product used for unknown indication
     Dosage: 25 MG, UNK
     Route: 065
     Dates: start: 20170116
  3. METHOTREXATE [Suspect]
     Active Substance: METHOTREXATE
     Dosage: 25 MG, UNK
     Route: 065
     Dates: start: 20160115
  4. METHOTREXATE [Suspect]
     Active Substance: METHOTREXATE
     Dosage: 25 MG, UNK
     Route: 065
     Dates: start: 20160517
  5. METHOTREXATE [Suspect]
     Active Substance: METHOTREXATE
     Dosage: 25 MG, UNK
     Route: 065
     Dates: start: 20160721
  6. METHOTREXATE [Suspect]
     Active Substance: METHOTREXATE
     Dosage: 25 MG, UNK
     Route: 065
     Dates: start: 20170910
  7. RITUXIMAB [Suspect]
     Active Substance: RITUXIMAB
     Indication: Product used for unknown indication
     Route: 065
  8. RITUXIMAB [Suspect]
     Active Substance: RITUXIMAB
     Indication: Product used for unknown indication
     Dosage: 1000 MG, UNK
     Route: 065
     Dates: start: 201701
  9. RITUXIMAB [Suspect]
     Active Substance: RITUXIMAB
     Dosage: 1000 MG, UNK
     Route: 065
     Dates: start: 201601
  10. TOCILIZUMAB [Suspect]
     Active Substance: TOCILIZUMAB
     Indication: Product used for unknown indication
     Dosage: 162 MG, UNK
     Route: 065
     Dates: start: 201711, end: 201712

REACTIONS (20)
  - Osteochondrosis [Recovered/Resolved]
  - Peripheral arterial occlusive disease [Recovered/Resolved]
  - Wound [Unknown]
  - Intervertebral disc protrusion [Recovered/Resolved]
  - Cubital tunnel syndrome [Unknown]
  - Axonal neuropathy [Unknown]
  - Multifocal motor neuropathy [Unknown]
  - Atrophy [Unknown]
  - Giant cell arteritis [Recovered/Resolved]
  - Pulmonary fibrosis [Recovered/Resolved]
  - Pulmonary fibrosis [Unknown]
  - Asthenia [Unknown]
  - Endocarditis [Unknown]
  - Visual impairment [Recovered/Resolved]
  - Paresis [Unknown]
  - Paraesthesia [Unknown]
  - Vasculitis [Unknown]
  - Respiratory failure [Unknown]
  - Cough [Recovered/Resolved]
  - Rhinitis [Not Recovered/Not Resolved]

NARRATIVE: CASE EVENT DATE: 20171120
